FAERS Safety Report 4658321-3 (Version None)
Quarter: 2005Q2

REPORT INFORMATION
  Report Type: 
  Country: None (occurrence: None)
  Receive Date: 20050509
  Receipt Date: 20050502
  Transmission Date: 20051028
  Serious: Yes (Hospitalization, Other)
  Sender: FDA-Public Use
  Company Number: FRWYE635102MAY05

PATIENT
  Age: 65 Year
  Sex: Male

DRUGS (5)
  1. TAZOCILLINE [Suspect]
     Indication: SEPSIS
     Dosage: SEE IMAGE
     Route: 042
     Dates: start: 20050331, end: 20050331
  2. TAZOCILLINE [Suspect]
     Indication: SEPSIS
     Dosage: SEE IMAGE
     Route: 042
     Dates: start: 20050401, end: 20050401
  3. TAZOCILLINE [Suspect]
     Indication: SEPSIS
     Dosage: SEE IMAGE
     Route: 042
     Dates: start: 20050402, end: 20050403
  4. AMIKACIN [Suspect]
     Dosage: 600 MG ON 31-MAR-2005, 450 MG/DAY ON 02 AND 03-APR-2005 INTRAVENOUS
     Route: 042
     Dates: start: 20050331, end: 20050403
  5. FLUCONAZOLE [Suspect]
     Dosage: 200 MG 2X PER 1 DAY ORAL
     Route: 048
     Dates: start: 20050331, end: 20050404

REACTIONS (2)
  - DRUG LEVEL ABOVE THERAPEUTIC [None]
  - GRAND MAL CONVULSION [None]
